FAERS Safety Report 11464345 (Version 3)
Quarter: 2015Q3

REPORT INFORMATION
  Report Type: Spontaneous
  Country: US (occurrence: US)
  Receive Date: 20150831
  Receipt Date: 20150903
  Transmission Date: 20151125
  Serious: Yes (Other)
  Sender: FDA-Public Use
  Company Number: US-ELI_LILLY_AND_COMPANY-US201106002528

PATIENT
  Age: 69 Year
  Sex: Male
  Weight: 81.63 kg

DRUGS (8)
  1. ASPIRIN. [Concomitant]
     Active Substance: ASPIRIN
     Dosage: 81 MG, QD
     Route: 048
  2. CYMBALTA [Suspect]
     Active Substance: DULOXETINE HYDROCHLORIDE
     Dosage: 60 MG, UNK
  3. CENTRUM [Concomitant]
     Active Substance: VITAMINS
     Dosage: UNK, QD
     Route: 048
  4. CYMBALTA [Suspect]
     Active Substance: DULOXETINE HYDROCHLORIDE
     Dosage: 30 MG, QD
     Route: 048
     Dates: start: 201106
  5. CLOPIDOGREL [Concomitant]
     Active Substance: CLOPIDOGREL BISULFATE
  6. HYDROCHLOROTHIAZIDE. [Concomitant]
     Active Substance: HYDROCHLOROTHIAZIDE
     Dosage: 25 MG, QD
     Route: 048
  7. NITRO-SPRAY [Concomitant]
     Active Substance: ISOSORBIDE DINITRATE
     Dosage: 0.4 MG, PRN
  8. LISINOPRIL. [Concomitant]
     Active Substance: LISINOPRIL
     Dosage: 5 MG, QD
     Route: 048

REACTIONS (4)
  - Electrocardiogram ST-T change [Unknown]
  - Sinus bradycardia [Unknown]
  - Erectile dysfunction [Not Recovered/Not Resolved]
  - Atrial flutter [Unknown]

NARRATIVE: CASE EVENT DATE: 20110707
